FAERS Safety Report 10432627 (Version 5)
Quarter: 2014Q4

REPORT INFORMATION
  Report Type: Report from Study
  Country: CN (occurrence: CN)
  Receive Date: 20140905
  Receipt Date: 20141107
  Transmission Date: 20150528
  Serious: Yes (Hospitalization)
  Sender: FDA-Public Use
  Company Number: CN-BAYER-2014-120338

PATIENT
  Age: 46 Year
  Sex: Male

DRUGS (1)
  1. NEXAVAR [Suspect]
     Active Substance: SORAFENIB
     Indication: HEPATOCELLULAR CARCINOMA
     Dosage: 400 MG, BID
     Dates: start: 20140807

REACTIONS (10)
  - Palmar-plantar erythrodysaesthesia syndrome [None]
  - Pyrexia [Recovered/Resolved]
  - Rash [Recovered/Resolved]
  - Cough [None]
  - Chills [None]
  - Alopecia [None]
  - Rash [None]
  - Diarrhoea [Recovered/Resolved]
  - Pleural effusion [None]
  - Pyrexia [Recovered/Resolved]

NARRATIVE: CASE EVENT DATE: 20140811
